FAERS Safety Report 24667261 (Version 2)
Quarter: 2025Q2

REPORT INFORMATION
  Report Type: Spontaneous
  Country: US (occurrence: US)
  Receive Date: 20241126
  Receipt Date: 20250407
  Transmission Date: 20250717
  Serious: No
  Sender: INCYTE
  Company Number: US-EVENT-000393

PATIENT

DRUGS (2)
  1. OPZELURA [Suspect]
     Active Substance: RUXOLITINIB PHOSPHATE
     Indication: Dermatitis atopic
     Dosage: UNK, BID
     Route: 065
  2. OPZELURA [Suspect]
     Active Substance: RUXOLITINIB PHOSPHATE
     Dosage: UNK, BID

REACTIONS (2)
  - Dermatitis atopic [Not Recovered/Not Resolved]
  - Haemorrhage [Not Recovered/Not Resolved]
